FAERS Safety Report 23012564 (Version 3)
Quarter: 2024Q2

REPORT INFORMATION
  Report Type: Report from Study
  Country: US (occurrence: US)
  Receive Date: 20230930
  Receipt Date: 20240430
  Transmission Date: 20240716
  Serious: No
  Sender: FDA-Public Use
  Company Number: US-SA-2023SA200767

PATIENT
  Age: 42 Year
  Sex: Male

DRUGS (2)
  1. DUPILUMAB [Suspect]
     Active Substance: DUPILUMAB
     Indication: Dermatitis atopic
     Dosage: 300 MG, QOW
     Route: 058
     Dates: start: 20230131, end: 20240301
  2. OPZELURA [Concomitant]
     Active Substance: RUXOLITINIB PHOSPHATE
     Dosage: UNK

REACTIONS (6)
  - Injection site rash [Recovered/Resolved]
  - Rash macular [Unknown]
  - Skin discolouration [Unknown]
  - Pruritus [Unknown]
  - Therapeutic response shortened [Unknown]
  - Rash [Unknown]

NARRATIVE: CASE EVENT DATE: 20230131
